FAERS Safety Report 20514511 (Version 3)
Quarter: 2022Q3

REPORT INFORMATION
  Report Type: Report from Study
  Country: US (occurrence: US)
  Receive Date: 20220224
  Receipt Date: 20220722
  Transmission Date: 20221027
  Serious: Yes (Death, Hospitalization)
  Sender: FDA-Public Use
  Company Number: US-MIRM-000300

PATIENT
  Age: 3 Year
  Sex: Female

DRUGS (13)
  1. LIVMARLI [Suspect]
     Active Substance: MARALIXIBAT CHLORIDE
     Indication: Biliary obstruction
     Route: 048
     Dates: start: 20211202
  2. ALBUMIN HUMAN [Concomitant]
     Active Substance: ALBUMIN HUMAN
  3. ALDACTAZIDE [Concomitant]
     Active Substance: HYDROCHLOROTHIAZIDE\SPIRONOLACTONE
  4. ASPIRIN [Concomitant]
     Active Substance: ASPIRIN
  5. CALCITRIOL [Concomitant]
     Active Substance: CALCITRIOL
  6. CALCIUM CARBONATE [Concomitant]
     Active Substance: CALCIUM CARBONATE
  7. CHOLECALCIFEROL [Concomitant]
     Active Substance: CHOLECALCIFEROL
  8. Clonidine HCl (Bulk) [Concomitant]
  9. FERROUS SULFATE [Concomitant]
     Active Substance: FERROUS SULFATE
  10. FUROSEMIDE [Concomitant]
     Active Substance: FUROSEMIDE
  11. VITAMINS [Concomitant]
     Active Substance: VITAMINS
  12. TPN ELECTROLYTES [Concomitant]
     Active Substance: CALCIUM CHLORIDE\MAGNESIUM CHLORIDE\POTASSIUM CHLORIDE\SODIUM ACETATE ANHYDROUS\SODIUM CHLORIDE
  13. Ursodiol+SyrSpend SF [Concomitant]

REACTIONS (7)
  - Death [Fatal]
  - Renal impairment [Unknown]
  - Vascular device infection [Unknown]
  - Pruritus [Unknown]
  - Gastrointestinal haemorrhage [Unknown]
  - Pulmonary arterial pressure increased [Unknown]
  - Total bile acids increased [Unknown]

NARRATIVE: CASE EVENT DATE: 20220530
